FAERS Safety Report 8348510-9 (Version None)
Quarter: 2012Q2

REPORT INFORMATION
  Report Type: 
  Country: None (occurrence: None)
  Receive Date: 20120509
  Receipt Date: 20120423
  Transmission Date: 20120825
  Serious: Yes (Other)
  Sender: FDA-Public Use
  Company Number: PHHY2011KR110130

PATIENT
  Sex: Female
  Weight: 61 kg

DRUGS (1)
  1. EXJADE [Suspect]
     Indication: MYELODYSPLASTIC SYNDROME
     Dosage: 20 MG/KG
     Route: 048
     Dates: start: 20071223, end: 20090216

REACTIONS (7)
  - PAIN IN EXTREMITY [None]
  - PNEUMONIA [None]
  - NASOPHARYNGITIS [None]
  - CONSTIPATION [None]
  - OEDEMA PERIPHERAL [None]
  - INSOMNIA [None]
  - ABDOMINAL PAIN [None]
